APPROVED DRUG PRODUCT: MESNA
Active Ingredient: MESNA
Strength: 400MG
Dosage Form/Route: TABLET;ORAL
Application: A218871 | Product #001 | TE Code: AB
Applicant: NOVAST LABORATORIES LTD
Approved: Jan 13, 2025 | RLD: No | RS: No | Type: RX